FAERS Safety Report 10916384 (Version 2)
Quarter: 2015Q2

REPORT INFORMATION
  Report Type: Spontaneous
  Country: FR (occurrence: FR)
  Receive Date: 20150316
  Receipt Date: 20150430
  Transmission Date: 20150821
  Serious: Yes (Other)
  Sender: FDA-Public Use
  Company Number: FR-TEVA-537158ISR

PATIENT
  Sex: Male
  Weight: 70 kg

DRUGS (5)
  1. TAMSULOSINE TEVA LP 0.4 MG [Suspect]
     Active Substance: TAMSULOSIN HYDROCHLORIDE
     Indication: BENIGN PROSTATIC HYPERPLASIA
     Dates: start: 20080812
  2. FLUVASTATINE 40 MG [Concomitant]
     Indication: HYPERCHOLESTEROLAEMIA
     Dosage: 40 MILLIGRAM DAILY;
     Route: 048
     Dates: start: 1999
  3. RAMIPRIL 2.5 MG [Concomitant]
     Indication: HYPERTENSION
     Dosage: 2.5 MILLIGRAM DAILY;
     Dates: start: 20140106
  4. ASPEGIC [Concomitant]
     Active Substance: ASPIRIN DL-LYSINE
     Indication: RETINAL VEIN OCCLUSION
     Route: 048
     Dates: start: 1999
  5. PERMIXON 160 MG [Concomitant]
     Indication: BENIGN PROSTATIC HYPERPLASIA
     Dosage: 320 MILLIGRAM DAILY;
     Route: 048
     Dates: start: 20150202

REACTIONS (10)
  - Osteonecrosis [Not Recovered/Not Resolved]
  - Osteoarthritis [Not Recovered/Not Resolved]
  - Pollakiuria [Unknown]
  - Dry mouth [Unknown]
  - Headache [Unknown]
  - Vision blurred [Unknown]
  - Limb immobilisation [Unknown]
  - Pruritus [Unknown]
  - Nausea [Unknown]
  - Arthralgia [Unknown]
